FAERS Safety Report 4972015-6 (Version None)
Quarter: 2006Q2

REPORT INFORMATION
  Report Type: 
  Country: None (occurrence: None)
  Receive Date: 20060407
  Receipt Date: 20060327
  Transmission Date: 20061013
  Serious: Yes (Hospitalization, Other)
  Sender: FDA-Public Use
  Company Number: 2006042477

PATIENT
  Age: 81 Year
  Sex: Male
  Weight: 90.7194 kg

DRUGS (13)
  1. LIPITOR [Suspect]
     Indication: BLOOD CHOLESTEROL
     Dosage: 40 MG (40 MG, 1 IN 1 D)
     Dates: start: 20050101, end: 20060301
  2. ALL OTHER THERAPEUTIC PRODUCTS (ALL OTHER THERAPEUTIC PRODUCTS) [Suspect]
     Indication: THYROID OPERATION
  3. ATENOLOL [Concomitant]
  4. CARDIAC THERAPY [Concomitant]
  5. POTASSIUM [Concomitant]
  6. LASIX [Concomitant]
  7. THYROID TAB [Concomitant]
  8. HYDROCHLOROTHIAZIDE [Concomitant]
  9. TYLENOL [Concomitant]
  10. CLARITIN [Concomitant]
  11. ASPIRIN [Concomitant]
  12. NIACIN [Concomitant]
  13. IRON [Concomitant]

REACTIONS (7)
  - ASTHENIA [None]
  - FALL [None]
  - MUSCULAR WEAKNESS [None]
  - MYALGIA [None]
  - MYOCARDIAL INFARCTION [None]
  - PNEUMONIA [None]
  - THYROID FUNCTION TEST ABNORMAL [None]
